FAERS Safety Report 15131170 (Version 1)
Quarter: 2018Q3

REPORT INFORMATION
  Report Type: Report from Study
  Country: US (occurrence: US)
  Receive Date: 20180711
  Receipt Date: 20180711
  Transmission Date: 20181010
  Serious: Yes (Death)
  Sender: FDA-Public Use
  Company Number: US-EXELIXIS-CABO-18014843

PATIENT
  Age: 57 Year
  Sex: Female

DRUGS (1)
  1. CABOMETYX [Suspect]
     Active Substance: CABOZANTINIB S-MALATE
     Indication: RENAL CANCER
     Dosage: 20 MG, (1 TAB 7 DAYS, 2 TABS 7 DAYS, 3 TABS 7 DAYS ONCE)
     Route: 048
     Dates: start: 20180508

REACTIONS (1)
  - Death [Fatal]

NARRATIVE: CASE EVENT DATE: 20180613
